FAERS Safety Report 12311119 (Version 2)
Quarter: 2016Q2

REPORT INFORMATION
  Report Type: Spontaneous
  Country: AU (occurrence: AU)
  Receive Date: 20160427
  Receipt Date: 20160513
  Transmission Date: 20160815
  Serious: Yes (Hospitalization)
  Sender: FDA-Public Use
  Company Number: AU-ASTRAZENECA-2016SE43747

PATIENT
  Age: 18862 Day
  Sex: Male

DRUGS (2)
  1. ERLOTINIB [Concomitant]
     Active Substance: ERLOTINIB
     Dates: start: 201403, end: 201510
  2. OSIMERTINIB [Suspect]
     Active Substance: OSIMERTINIB
     Indication: LUNG ADENOCARCINOMA STAGE IV
     Route: 048

REACTIONS (3)
  - Nausea [Recovered/Resolved]
  - Vomiting [Recovered/Resolved]
  - Diarrhoea [Recovered/Resolved]

NARRATIVE: CASE EVENT DATE: 20160418
